FAERS Safety Report 19354998 (Version 1)
Quarter: 2021Q2

REPORT INFORMATION
  Report Type: Spontaneous
  Country: US (occurrence: US)
  Receive Date: 20210601
  Receipt Date: 20210601
  Transmission Date: 20210717
  Serious: Yes (Hospitalization)
  Sender: FDA-Public Use
  Company Number: None

PATIENT
  Age: 50 Year
  Sex: Female

DRUGS (13)
  1. MAGNESIUM OXIDE. [Concomitant]
     Active Substance: MAGNESIUM OXIDE
  2. VIIBRYD [Concomitant]
     Active Substance: VILAZODONE HYDROCHLORIDE
  3. PROMACTA [Suspect]
     Active Substance: ELTROMBOPAG OLAMINE
     Indication: THROMBOCYTOPENIA
     Route: 048
     Dates: start: 20210330
  4. OXYCODONE [Concomitant]
     Active Substance: OXYCODONE
  5. ROSUVASTAIN [Concomitant]
     Active Substance: ROSUVASTATIN
  6. POT CL MICRO TAB [Concomitant]
  7. VASCEPA [Concomitant]
     Active Substance: ICOSAPENT ETHYL
  8. LANTUS [Concomitant]
     Active Substance: INSULIN GLARGINE
  9. METOPROLOL TARTRATE. [Concomitant]
     Active Substance: METOPROLOL TARTRATE
  10. BUPROPION. [Concomitant]
     Active Substance: BUPROPION
  11. FOLIC ACID. [Concomitant]
     Active Substance: FOLIC ACID
  12. STOOL SOFTENER (DOCUSATE) [Concomitant]
     Active Substance: DOCUSATE
  13. VITAMIN D. [Concomitant]

REACTIONS (2)
  - Gallbladder operation [None]
  - Spleen operation [None]

NARRATIVE: CASE EVENT DATE: 20210525
